FAERS Safety Report 20759020 (Version 3)
Quarter: 2022Q4

REPORT INFORMATION
  Report Type: Report from Study
  Country: US (occurrence: None)
  Receive Date: 20220427
  Receipt Date: 20221114
  Transmission Date: 20230113
  Serious: Yes (Other)
  Sender: FDA-Public Use
  Company Number: US-ROCHE-2756293

PATIENT
  Age: 72 Year
  Sex: Female
  Weight: 132 kg

DRUGS (21)
  1. RANIBIZUMAB [Suspect]
     Active Substance: RANIBIZUMAB
     Indication: Diabetic retinal oedema
     Dosage: THE MOST RECENT DOSE OF STUDY DRUG PRIOR TO SAE EVENT (100 MG/ML) ON 19/JAN/2021?SHE RECEIVED THE FI
     Route: 050
     Dates: start: 20200924
  2. RANIBIZUMAB [Suspect]
     Active Substance: RANIBIZUMAB
  3. RANIBIZUMAB [Suspect]
     Active Substance: RANIBIZUMAB
  4. RANIBIZUMAB [Suspect]
     Active Substance: RANIBIZUMAB
  5. RANIBIZUMAB [Suspect]
     Active Substance: RANIBIZUMAB
  6. RANIBIZUMAB [Suspect]
     Active Substance: RANIBIZUMAB
  7. RANIBIZUMAB [Concomitant]
     Active Substance: RANIBIZUMAB
     Dosage: START DATE OF MOST RECENT DOSE OF STUDY DRUG PRIOR TO AE (6 MG/ML) : 24/DEC/2020?SHE RECEIVED THE FI
     Route: 050
     Dates: start: 20201020
  8. AVASTIN [Concomitant]
     Active Substance: BEVACIZUMAB
     Indication: Diabetic retinal oedema
     Dates: start: 20190309
  9. LOSARTAN [Concomitant]
     Active Substance: LOSARTAN
     Indication: Hypertension
     Dosage: 50 MG/ML
     Route: 048
     Dates: start: 202004
  10. CITALOPRAM HYDROBROMIDE [Concomitant]
     Active Substance: CITALOPRAM HYDROBROMIDE
     Dosage: 10 MG/ML
     Route: 048
     Dates: start: 2014
  11. FISH OIL [Concomitant]
     Active Substance: FISH OIL
     Route: 048
     Dates: start: 201910
  12. LEVEMIR [Concomitant]
     Active Substance: INSULIN DETEMIR
     Indication: Diabetes mellitus
     Dosage: 21 U
     Route: 058
     Dates: start: 2015
  13. LEVOTHYROXINE [Concomitant]
     Active Substance: LEVOTHYROXINE
     Indication: Hypothyroidism
     Dates: start: 1993
  14. PRAVASTATIN [Concomitant]
     Active Substance: PRAVASTATIN
     Indication: Hypercholesterolaemia
     Dosage: 20 MG/ML
     Route: 048
     Dates: start: 2010
  15. TRAMADOL [Concomitant]
     Active Substance: TRAMADOL
     Indication: Arthralgia
     Dosage: 50 MG/ML
     Route: 048
     Dates: start: 2009
  16. VICTOZA [Concomitant]
     Active Substance: LIRAGLUTIDE
     Indication: Diabetes mellitus
     Dosage: 1.8 MG/ML
     Route: 058
     Dates: start: 2017
  17. VITAMIN D3 [Concomitant]
     Active Substance: CHOLECALCIFEROL
     Route: 048
     Dates: start: 2010
  18. TYLENOL [Concomitant]
     Active Substance: ACETAMINOPHEN
     Indication: Arthralgia
     Dosage: 325 MG/ML
     Route: 048
     Dates: start: 20200924
  19. CIPROFLOXACIN [Concomitant]
     Active Substance: CIPROFLOXACIN
     Indication: Urinary tract infection
     Dosage: 500 MG/ML
     Route: 048
     Dates: start: 20210216, end: 20210223
  20. OFLOXACIN [Concomitant]
     Active Substance: OFLOXACIN
     Indication: Prophylaxis
     Route: 047
     Dates: start: 20210120
  21. PREDNISOLONE ACETATE [Concomitant]
     Active Substance: PREDNISOLONE ACETATE
     Dosage: 1 %
     Route: 047
     Dates: start: 20210120, end: 20210123

REACTIONS (1)
  - Vitreous haemorrhage [Recovered/Resolved]

NARRATIVE: CASE EVENT DATE: 20210121
